FAERS Safety Report 20222858 (Version 1)
Quarter: 2021Q4

REPORT INFORMATION
  Report Type: Spontaneous
  Country: ES (occurrence: ES)
  Receive Date: 20211223
  Receipt Date: 20211223
  Transmission Date: 20220303
  Serious: Yes (Other)
  Sender: FDA-Public Use
  Company Number: ES-GLAXOSMITHKLINE-ES2021GSK261058

PATIENT
  Age: 32 Year
  Sex: Female

DRUGS (2)
  1. RANITIDINE [Suspect]
     Active Substance: RANITIDINE
     Indication: Dyspepsia
     Dosage: UNK
     Route: 048
  2. RANITIDINE [Suspect]
     Active Substance: RANITIDINE
     Dosage: UNK
     Route: 042
     Dates: start: 202008

REACTIONS (15)
  - Kounis syndrome [Unknown]
  - Anaphylactic reaction [Unknown]
  - Stress cardiomyopathy [Unknown]
  - Drug hypersensitivity [Unknown]
  - Myocardial ischaemia [Recovered/Resolved]
  - Cardiac failure congestive [Recovered/Resolved]
  - Urticaria [Unknown]
  - Vomiting [Unknown]
  - Dyspnoea [Unknown]
  - Chest pain [Unknown]
  - Troponin T increased [Unknown]
  - Cardiogenic shock [Unknown]
  - Vital functions abnormal [Unknown]
  - Hypotension [Unknown]
  - Oxygen saturation decreased [Unknown]
